FAERS Safety Report 4801148-X (Version None)
Quarter: 2005Q4

REPORT INFORMATION
  Report Type: 
  Country: None (occurrence: None)
  Receive Date: 20051011
  Receipt Date: 20050929
  Transmission Date: 20060501
  Serious: Yes (Hospitalization, Other)
  Sender: FDA-Public Use
  Company Number: HQWYE811303OCT05

PATIENT
  Age: 55 Year
  Sex: Male

DRUGS (4)
  1. RAPAMUNE [Suspect]
     Indication: PROPHYLAXIS AGAINST TRANSPLANT REJECTION
     Dosage: 4 MG 1X PER 1 DAY, ORAL
     Route: 048
     Dates: start: 20050517
  2. PREDNISONE [Suspect]
     Dosage: 30 MG 1X PER 1 DAY, ORAL
     Route: 048
     Dates: start: 20050614
  3. PROPRANOLOL [Concomitant]
  4. ALDOMET [Concomitant]

REACTIONS (1)
  - GASTRITIS [None]
